FAERS Safety Report 9405454 (Version 1)
Quarter: 2013Q3

REPORT INFORMATION
  Report Type: Spontaneous
  Country: IT (occurrence: None)
  Receive Date: 20130715
  Receipt Date: 20130715
  Transmission Date: 20140515
  Serious: Yes (Other)
  Sender: FDA-Public Use
  Company Number: 1788388

PATIENT
  Age: 56 Year
  Sex: Female

DRUGS (5)
  1. DOCETAXEL [Suspect]
     Indication: BREAST CANCER
     Dosage: 114 MG MILLIGRAM(S), CYCLICAL, INTRAVENOUS
     Route: 042
     Dates: start: 20130627, end: 20130627
  2. ENDOXAN [Concomitant]
  3. TRIMETON [Concomitant]
  4. RANIDIL [Concomitant]
  5. ZOFRAN [Concomitant]

REACTIONS (4)
  - Dyspepsia [None]
  - Visual acuity reduced [None]
  - Erythema [None]
  - Paraesthesia oral [None]
